FAERS Safety Report 12985656 (Version 1)
Quarter: 2016Q4

REPORT INFORMATION
  Report Type: Report from Study
  Country: IT (occurrence: IT)
  Receive Date: 20161130
  Receipt Date: 20161130
  Transmission Date: 20170207
  Serious: Yes (Other)
  Sender: FDA-Public Use
  Company Number: IT-ROCHE-1857861

PATIENT

DRUGS (2)
  1. RITUXIMAB [Suspect]
     Active Substance: RITUXIMAB
     Indication: B-CELL LYMPHOMA
     Dosage: ON DAY 1 OF CYCLES III, IV, V, AND VI
     Route: 042
  2. BORTEZOMIB [Suspect]
     Active Substance: BORTEZOMIB
     Indication: B-CELL LYMPHOMA
     Dosage: ON DAYS 1, 4, 8, AND 11 FOR SIX 21-DAY COURSES (CYCLES I-VI).
     Route: 040

REACTIONS (4)
  - Neutropenia [Unknown]
  - Infection [Unknown]
  - Neuropathy peripheral [Unknown]
  - Thrombocytopenia [Unknown]
